FAERS Safety Report 9483489 (Version 1)
Quarter: 2013Q3

REPORT INFORMATION
  Report Type: Spontaneous
  Country: US (occurrence: US)
  Receive Date: 20130828
  Receipt Date: 20130828
  Transmission Date: 20140515
  Serious: Yes (Death, Hospitalization, Other)
  Sender: FDA-Public Use
  Company Number: US-AMGEN-KDL272323

PATIENT
  Age: 82 Year
  Sex: Male

DRUGS (4)
  1. PROCRIT [Suspect]
     Indication: ANAEMIA
     Dosage: 60000 IU, 2 TIMES/WK
     Route: 065
  2. SIMVASTATIN [Concomitant]
  3. CARVEDILOL [Concomitant]
  4. OXYGEN [Concomitant]

REACTIONS (3)
  - Death [Fatal]
  - Oesophageal carcinoma [Unknown]
  - Condition aggravated [Unknown]
